FAERS Safety Report 6042244-1 (Version None)
Quarter: 2009Q1

REPORT INFORMATION
  Report Type: 
  Country: None (occurrence: None)
  Receive Date: 20090116
  Receipt Date: 20090105
  Transmission Date: 20090719
  Serious: Yes (Hospitalization, Other)
  Sender: FDA-Public Use
  Company Number: IE-PFIZER INC-2008080036

PATIENT

DRUGS (8)
  1. LIPITOR [Suspect]
     Dosage: 40 MG, 1X/DAY
     Route: 048
     Dates: start: 20050101, end: 20080915
  2. ERYTHROMYCIN [Suspect]
     Dosage: 1 G, 2X/DAY
     Route: 048
     Dates: start: 20080805, end: 20080915
  3. FUSIDIC ACID [Suspect]
     Indication: OSTEOMYELITIS
     Dosage: 500 MG, 3X/DAY
     Route: 048
     Dates: start: 20080805, end: 20080915
  4. METFORMIN HCL [Concomitant]
     Dosage: 850 MG, UNK
  5. RAMIPRIL [Concomitant]
     Dosage: UNK
  6. ACETYLSALICYLIC ACID SRT [Concomitant]
     Dosage: UNK
  7. DIAMICRON [Concomitant]
     Dosage: UNK
  8. AZITHROMYCIN [Concomitant]
     Dosage: UNK
     Route: 042
     Dates: start: 20080805

REACTIONS (2)
  - OSTEOMYELITIS [None]
  - RHABDOMYOLYSIS [None]
